FAERS Safety Report 6307899-2 (Version None)
Quarter: 2009Q3

REPORT INFORMATION
  Report Type: 
  Country: None (occurrence: None)
  Receive Date: 20090810
  Receipt Date: 20090728
  Transmission Date: 20100115
  Serious: Yes (Hospitalization)
  Sender: FDA-Public Use
  Company Number: POMP-1000555

PATIENT
  Age: 8 Month
  Sex: Male

DRUGS (2)
  1. MYOZYME [Suspect]
     Indication: GLYCOGEN STORAGE DISEASE TYPE II
     Dosage: 20 MG/KG, QW, INTRAVENOUS
     Route: 042
     Dates: start: 20090213
  2. ENALAPRIL MALEATE AND HYDROCHLOROTHIAZIDE [Concomitant]

REACTIONS (6)
  - CARDIOMYOPATHY [None]
  - CONDITION AGGRAVATED [None]
  - HYPOTONIA [None]
  - RESPIRATORY DISTRESS [None]
  - RESPIRATORY FAILURE [None]
  - WEIGHT GAIN POOR [None]
